FAERS Safety Report 6764870-4 (Version None)
Quarter: 2010Q2

REPORT INFORMATION
  Report Type: 
  Country: None (occurrence: None)
  Receive Date: 20100609
  Receipt Date: 20100501
  Transmission Date: 20101027
  Serious: No
  Sender: FDA-Public Use
  Company Number: 2010012024

PATIENT
  Age: 3 Year
  Sex: Male
  Weight: 19.0511 kg

DRUGS (2)
  1. CHILDREN'S ZYRTEC ALLERGY [Suspect]
     Indication: HYPERSENSITIVITY
     Dosage: 2.5 ML ONCE NIGHTLY ORAL
     Route: 048
     Dates: start: 20100419, end: 20100421
  2. CHILDREN'S BENADRYL ALLERGY [Suspect]
     Indication: HYPERSENSITIVITY
     Dosage: 2.5 ML ONCE NIGHTLY ORAL
     Route: 048
     Dates: start: 20100419, end: 20100421

REACTIONS (3)
  - PRODUCT QUALITY ISSUE [None]
  - SPEECH DISORDER [None]
  - WRONG DRUG ADMINISTERED [None]
